FAERS Safety Report 10391228 (Version 1)
Quarter: 2014Q3

REPORT INFORMATION
  Report Type: Spontaneous
  Country: IT (occurrence: IT)
  Receive Date: 20140818
  Receipt Date: 20140818
  Transmission Date: 20150326
  Serious: Yes (Hospitalization)
  Sender: FDA-Public Use
  Company Number: IT-TEVA-501594ISR

PATIENT
  Age: 70 Year
  Sex: Female

DRUGS (5)
  1. IRINOTECAN KABI [Suspect]
     Active Substance: IRINOTECAN
     Indication: COLON CANCER
     Dosage: 270 MILLIGRAM DAILY; CONCENTRATE FOR SOLUTION FOR INFUSION
     Route: 042
     Dates: start: 20140521, end: 20140521
  2. LEVOFOLENE [Concomitant]
     Active Substance: LEVOLEUCOVORIN CALCIUM
     Dosage: 150 MILLIGRAM DAILY; POWDER FOR SOLUTION FOR INFUSION
  3. FLUOROURACILE TEVA [Suspect]
     Active Substance: FLUOROURACIL
     Indication: COLON CANCER
     Dosage: 2400 MILLIGRAM DAILY;
     Route: 042
     Dates: start: 20140521, end: 20140523
  4. ZOFRAN 8 MG [Concomitant]
  5. SOLDESAM [Concomitant]
     Active Substance: DEXAMETHASONE

REACTIONS (2)
  - Pseudomonal sepsis [Recovered/Resolved]
  - Pancytopenia [Recovered/Resolved]

NARRATIVE: CASE EVENT DATE: 20140529
